FAERS Safety Report 11272171 (Version 1)
Quarter: 2015Q3

REPORT INFORMATION
  Report Type: Spontaneous
  Country: DK (occurrence: DK)
  Receive Date: 20150715
  Receipt Date: 20150715
  Transmission Date: 20151125
  Serious: Yes (Other)
  Sender: FDA-Public Use
  Company Number: DK-AUROBINDO-AUR-APL-2013-05561

PATIENT
  Age: 53 Year
  Sex: Male

DRUGS (2)
  1. GABAPENTIN AUROBINDO 300MG CAPSULES [Suspect]
     Active Substance: GABAPENTIN
     Indication: NEURALGIA
     Dosage: 300 MG,3 TIMES A DAY,
     Route: 048
     Dates: start: 20110527
  2. GABAPENTIN AUROBINDO 300MG CAPSULES [Suspect]
     Active Substance: GABAPENTIN
     Indication: NEUROPATHY PERIPHERAL
     Dosage: 900 UNK, UNK
     Route: 048

REACTIONS (2)
  - Tooth loss [Not Recovered/Not Resolved]
  - Gingivitis [Not Recovered/Not Resolved]
